FAERS Safety Report 16600807 (Version 4)
Quarter: 2019Q4

REPORT INFORMATION
  Report Type: Report from Study
  Country: BE (occurrence: BE)
  Receive Date: 20190720
  Receipt Date: 20191014
  Transmission Date: 20200122
  Serious: Yes (Hospitalization, Other)
  Sender: FDA-Public Use
  Company Number: BE-BRISTOL-MYERS SQUIBB COMPANY-BMS-2019-050712

PATIENT
  Age: 60 Year
  Sex: Female

DRUGS (2)
  1. IPILIMUMAB [Suspect]
     Active Substance: IPILIMUMAB
     Indication: MALIGNANT MELANOMA
     Dosage: UNK
     Route: 065
     Dates: start: 20190515, end: 20190626
  2. NIVOLUMAB [Suspect]
     Active Substance: NIVOLUMAB
     Indication: MALIGNANT MELANOMA
     Dosage: UNK
     Route: 065
     Dates: start: 20190515, end: 20190626

REACTIONS (20)
  - Hypersomnia [Unknown]
  - Thirst [Not Recovered/Not Resolved]
  - Hypophysitis [Unknown]
  - Fatigue [Unknown]
  - Muscle spasms [Unknown]
  - Coagulation test abnormal [Unknown]
  - Dry throat [Unknown]
  - Faeces hard [Not Recovered/Not Resolved]
  - Paraesthesia [Unknown]
  - Tendonitis [Unknown]
  - Acne [Unknown]
  - Arthralgia [Recovered/Resolved]
  - Nausea [Unknown]
  - Urinary tract infection [Unknown]
  - Hot flush [Unknown]
  - Pyrexia [Unknown]
  - Sleep disorder [Unknown]
  - Decreased appetite [Unknown]
  - Pruritus [Not Recovered/Not Resolved]
  - Asthenia [Unknown]

NARRATIVE: CASE EVENT DATE: 20190516
